FAERS Safety Report 14681420 (Version 1)
Quarter: 2018Q1

REPORT INFORMATION
  Report Type: Spontaneous
  Country: ZA (occurrence: ZA)
  Receive Date: 20180326
  Receipt Date: 20180326
  Transmission Date: 20180509
  Serious: Yes (Hospitalization)
  Sender: FDA-Public Use
  Company Number: ZA-PFIZER INC-2018123117

PATIENT

DRUGS (1)
  1. ZYVOXID [Suspect]
     Active Substance: LINEZOLID
     Dosage: 600 MG, UNK
     Route: 048

REACTIONS (2)
  - Tremor [Unknown]
  - Inflammatory marker increased [Unknown]
